FAERS Safety Report 13890778 (Version 1)
Quarter: 2017Q3

REPORT INFORMATION
  Report Type: Spontaneous
  Country: US (occurrence: US)
  Receive Date: 20170816
  Receipt Date: 20170816
  Transmission Date: 20171127
  Serious: Yes (Hospitalization)
  Sender: FDA-Public Use
  Company Number: None

PATIENT
  Age: 76 Year
  Sex: Male
  Weight: 74.4 kg

DRUGS (1)
  1. SULFASALAZINE. [Suspect]
     Active Substance: SULFASALAZINE
     Indication: TOXOPLASMOSIS
     Dosage: 1500 MG 4 TIMES A DAY ORAL
     Route: 048
     Dates: start: 20170727, end: 20170814

REACTIONS (8)
  - Wrong drug administered [None]
  - Balance disorder [None]
  - Nausea [None]
  - Headache [None]
  - Aphasia [None]
  - Speech disorder [None]
  - Drug dispensing error [None]
  - Vomiting [None]
